FAERS Safety Report 7626834-8 (Version None)
Quarter: 2011Q3

REPORT INFORMATION
  Report Type: 
  Country: None (occurrence: None)
  Receive Date: 20110721
  Receipt Date: 20110711
  Transmission Date: 20111222
  Serious: Yes (Other)
  Sender: FDA-Public Use
  Company Number: GB-US-EMD SERONO, INC.-7062714

PATIENT
  Sex: Female

DRUGS (3)
  1. REBIF [Suspect]
     Indication: PRODUCT USED FOR UNKNOWN INDICATION
     Route: 058
     Dates: start: 20110516, end: 20110620
  2. FLUOXETINE [Concomitant]
     Dates: end: 20110601
  3. FLUOXETINE [Concomitant]
     Dates: start: 20110601

REACTIONS (4)
  - ANGER [None]
  - SUICIDAL BEHAVIOUR [None]
  - MALAISE [None]
  - INJECTION SITE ERYTHEMA [None]
